FAERS Safety Report 5729825-7 (Version None)
Quarter: 2008Q2

REPORT INFORMATION
  Report Type: 
  Country: None (occurrence: None)
  Receive Date: 20080501
  Receipt Date: 20080421
  Transmission Date: 20081010
  Serious: No
  Sender: FDA-Public Use
  Company Number: 000727

PATIENT
  Age: 3 Year
  Sex: Male

DRUGS (8)
  1. BUSULFEX [Suspect]
     Indication: STEM CELL TRANSPLANT
     Dosage: 8.04 ML, INTRAVENOUS, 10.72 ML; INTRAVENOUS, 6.68 ML, INTRAVENOUS, 1.67 ML; INTRAVENOUS
     Route: 042
     Dates: start: 20070827, end: 20070827
  2. BUSULFEX [Suspect]
     Indication: STEM CELL TRANSPLANT
     Dosage: 8.04 ML, INTRAVENOUS, 10.72 ML; INTRAVENOUS, 6.68 ML, INTRAVENOUS, 1.67 ML; INTRAVENOUS
     Route: 042
     Dates: start: 20070828, end: 20070828
  3. BUSULFEX [Suspect]
     Indication: STEM CELL TRANSPLANT
     Dosage: 8.04 ML, INTRAVENOUS, 10.72 ML; INTRAVENOUS, 6.68 ML, INTRAVENOUS, 1.67 ML; INTRAVENOUS
     Route: 042
     Dates: start: 20070829, end: 20070830
  4. BUSULFEX [Suspect]
     Indication: STEM CELL TRANSPLANT
     Dosage: 8.04 ML, INTRAVENOUS, 10.72 ML; INTRAVENOUS, 6.68 ML, INTRAVENOUS, 1.67 ML; INTRAVENOUS
     Route: 042
     Dates: start: 20070831, end: 20070831
  5. MELPHALAN (MELPHALAN) [Suspect]
     Indication: DRUG USE FOR UNKNOWN INDICATION
     Dosage: 60 MG, INTRAVENOUS
     Route: 042
     Dates: start: 20070901, end: 20070902
  6. CLONAZEPAM [Concomitant]
  7. METHOTREXATE [Concomitant]
  8. CYCLOSPORINE [Concomitant]

REACTIONS (19)
  - ALANINE AMINOTRANSFERASE INCREASED [None]
  - ANOREXIA [None]
  - ASPARTATE AMINOTRANSFERASE INCREASED [None]
  - BLOOD LACTATE DEHYDROGENASE INCREASED [None]
  - CORD BLOOD TRANSPLANT THERAPY [None]
  - DIARRHOEA [None]
  - FEBRILE NEUTROPENIA [None]
  - GRAFT VERSUS HOST DISEASE [None]
  - HYPERKALAEMIA [None]
  - HYPOALBUMINAEMIA [None]
  - HYPOKALAEMIA [None]
  - HYPONATRAEMIA [None]
  - HYPOPROTEINAEMIA [None]
  - MALAISE [None]
  - RED BLOOD CELL COUNT DECREASED [None]
  - STOMATITIS [None]
  - VOMITING [None]
  - WHITE BLOOD CELL COUNT DECREASED [None]
  - WHITE BLOOD CELL COUNT INCREASED [None]
